FAERS Safety Report 6804300-7 (Version None)
Quarter: 2010Q2

REPORT INFORMATION
  Report Type: 
  Country: None (occurrence: None)
  Receive Date: 20100628
  Receipt Date: 20070312
  Transmission Date: 20101027
  Serious: Yes (Other)
  Sender: FDA-Public Use
  Company Number: US-PFIZER INC-2007006055

PATIENT
  Sex: Male

DRUGS (3)
  1. GEODON [Suspect]
     Indication: BIPOLAR II DISORDER
     Dates: start: 20060401, end: 20061101
  2. LAMICTAL [Concomitant]
     Dosage: 200-400/DAY
  3. EFFEXOR XR [Concomitant]
     Dosage: FREQUENCY: DAILY

REACTIONS (1)
  - TARDIVE DYSKINESIA [None]
